FAERS Safety Report 17245743 (Version 1)
Quarter: 2020Q1

REPORT INFORMATION
  Report Type: Spontaneous
  Country: GB (occurrence: GB)
  Receive Date: 20200108
  Receipt Date: 20200108
  Transmission Date: 20200409
  Serious: Yes (Hospitalization, Other)
  Sender: FDA-Public Use
  Company Number: GB-TEVA-2020-GB-1164354

PATIENT
  Age: 80 Year
  Sex: Female
  Weight: 92.5 kg

DRUGS (23)
  1. ISOSORBIDE MONONITRATE. [Concomitant]
     Active Substance: ISOSORBIDE MONONITRATE
  2. CASSIA [Concomitant]
  3. DULOXETINE. [Concomitant]
     Active Substance: DULOXETINE
  4. SALBUTAMOL [Concomitant]
     Active Substance: ALBUTEROL
  5. DIGOXIN. [Concomitant]
     Active Substance: DIGOXIN
  6. ORAMORPH [Concomitant]
     Active Substance: MORPHINE SULFATE
  7. TOLTERODINE [Concomitant]
     Active Substance: TOLTERODINE
  8. FERROUS FUMARATE [Concomitant]
     Active Substance: FERROUS FUMARATE
  9. TRAZODONE [Concomitant]
     Active Substance: TRAZODONE HYDROCHLORIDE
  10. NITROFURANTOIN. [Suspect]
     Active Substance: NITROFURANTOIN
     Indication: PROPHYLAXIS URINARY TRACT INFECTION
     Dosage: 50 MG
     Route: 048
  11. FUROSEMIDE. [Concomitant]
     Active Substance: FUROSEMIDE
  12. LANSOPRAZOLE. [Concomitant]
     Active Substance: LANSOPRAZOLE
  13. DILTIAZEM. [Concomitant]
     Active Substance: DILTIAZEM
  14. GLICLAZIDE [Concomitant]
     Active Substance: GLICLAZIDE
  15. APIXABAN [Concomitant]
     Active Substance: APIXABAN
  16. ZOMORPH [Concomitant]
     Active Substance: MORPHINE SULFATE
  17. LEVOTHYROXINE. [Concomitant]
     Active Substance: LEVOTHYROXINE
  18. CO-AMOXICLAV [Concomitant]
     Active Substance: AMOXICILLIN\CLAVULANATE POTASSIUM
  19. LACTULOSE. [Concomitant]
     Active Substance: LACTULOSE
  20. DOCUSATE SODIUM. [Concomitant]
     Active Substance: DOCUSATE SODIUM
  21. PARACETAMOL [Concomitant]
     Active Substance: ACETAMINOPHEN
  22. ATORVASTATIN [Concomitant]
     Active Substance: ATORVASTATIN
  23. METFORMIN [Concomitant]
     Active Substance: METFORMIN HYDROCHLORIDE

REACTIONS (1)
  - Pneumonitis [Recovering/Resolving]
